FAERS Safety Report 19799250 (Version 1)
Quarter: 2021Q3

REPORT INFORMATION
  Report Type: Report from Study
  Country: US (occurrence: US)
  Receive Date: 20210907
  Receipt Date: 20210907
  Transmission Date: 20211014
  Serious: Yes (Death)
  Sender: FDA-Public Use
  Company Number: US-ASTRAZENECA-2021A711999

PATIENT
  Age: 22910 Day
  Sex: Female

DRUGS (2)
  1. LYNPARZA [Suspect]
     Active Substance: OLAPARIB
     Indication: ENDOMETRIAL NEOPLASM
     Route: 048
     Dates: start: 202107, end: 20210813
  2. LYNPARZA [Suspect]
     Active Substance: OLAPARIB
     Indication: UTERINE CANCER
     Route: 048
     Dates: start: 202107, end: 20210813

REACTIONS (1)
  - Death [Fatal]

NARRATIVE: CASE EVENT DATE: 20210813
